FAERS Safety Report 6620136-4 (Version None)
Quarter: 2010Q1

REPORT INFORMATION
  Report Type: 
  Country: None (occurrence: None)
  Receive Date: 20100309
  Receipt Date: 20060227
  Transmission Date: 20100710
  Serious: Yes (Other)
  Sender: FDA-Public Use
  Company Number: HQWYE994220NOV06

PATIENT

DRUGS (3)
  1. NEUMEGA [Suspect]
     Indication: HEPATITIS C
     Dosage: DOSE NOT PROVIDED
  2. INTERFERON [Suspect]
     Indication: HEPATITIS C
     Dosage: ^HIGH DOSE^ DOSE NOT PROVIDED
  3. RIBAVIRIN [Concomitant]
     Indication: HEPATITIS C
     Dosage: DOSE NOT PROVIDED

REACTIONS (1)
  - HEPATOTOXICITY [None]
